FAERS Safety Report 6936106-2 (Version None)
Quarter: 2010Q3

REPORT INFORMATION
  Report Type: 
  Country: None (occurrence: None)
  Receive Date: 20100817
  Receipt Date: 20100804
  Transmission Date: 20110219
  Serious: Yes (Death, Hospitalization)
  Sender: FDA-Public Use
  Company Number: MPS1-1000340

PATIENT
  Age: 2 Year
  Sex: Male

DRUGS (19)
  1. ALDURAZYME [Suspect]
     Indication: MUCOPOLYSACCHARIDOSIS
     Dosage: 8.7 MG, 1X/W, INTRAVENOUS
     Route: 042
     Dates: start: 20100101, end: 20100527
  2. FLUDARABINE PHOSPHATE [Concomitant]
  3. BUSULPHAM (BUSULFAN) [Concomitant]
  4. CYCLOPHOSPHAMIDE [Concomitant]
  5. CYCLOSPORINE [Concomitant]
  6. METHOTREXATE [Concomitant]
  7. URSODIOL [Concomitant]
  8. ACYCLOVIR [Concomitant]
  9. FLUCONAZOLE [Concomitant]
  10. CEFEPIME [Concomitant]
  11. MEROPENEM [Concomitant]
  12. VANCOMYCIN [Concomitant]
  13. AMBISOME (CHOLSTEROL) [Concomitant]
  14. METHYLPREDNISOLONE [Concomitant]
  15. FUROSEMIDE [Concomitant]
  16. CAPTOPRIL [Concomitant]
  17. CIDOFOVIR (CIDOFOVIR) [Concomitant]
  18. DEFIBROTIDE (DEFIBROTIDE) [Concomitant]
  19. ANTI-THYMOCYTE GLOBULIN NOS [Concomitant]

REACTIONS (13)
  - ADENOVIRUS INFECTION [None]
  - CORONARY ARTERY DISEASE [None]
  - CYTOMEGALOVIRUS INFECTION [None]
  - GASTROINTESTINAL HAEMORRHAGE [None]
  - HAEMATEMESIS [None]
  - HEPATIC FUNCTION ABNORMAL [None]
  - MUCOSAL INFLAMMATION [None]
  - MULTI-ORGAN FAILURE [None]
  - OEDEMA [None]
  - PNEUMONITIS [None]
  - PULMONARY HAEMORRHAGE [None]
  - RASH [None]
  - RESPIRATORY DISTRESS [None]
